FAERS Safety Report 8482763-1 (Version None)
Quarter: 2012Q3

REPORT INFORMATION
  Report Type: 
  Country: None (occurrence: None)
  Receive Date: 20120702
  Receipt Date: 20120630
  Transmission Date: 20120928
  Serious: Yes (Death)
  Sender: FDA-Public Use
  Company Number: IN-B.I. PHARMACEUTICALS,INC./RIDGEFIELD-2012-CS-00943IG

PATIENT
  Sex: Male
  Weight: 84 kg

DRUGS (2)
  1. AGGRENOX [Suspect]
     Indication: CEREBROVASCULAR ACCIDENT
     Dosage: 25/200 MG CAPSULE, ONCE DAILY
     Route: 048
     Dates: start: 20080327, end: 20120515
  2. SINDOMA PLUS [Concomitant]
     Indication: PARKINSON'S DISEASE

REACTIONS (1)
  - BLOOD GLUCOSE DECREASED [None]
